FAERS Safety Report 9458262 (Version 1)
Quarter: 2013Q3

REPORT INFORMATION
  Report Type: Spontaneous
  Country: NO (occurrence: NO)
  Receive Date: 20130814
  Receipt Date: 20130814
  Transmission Date: 20140515
  Serious: Yes (Disabling)
  Sender: FDA-Public Use
  Company Number: NO-PFIZER INC-2013233874

PATIENT
  Age: 58 Year
  Sex: Female
  Weight: 68 kg

DRUGS (2)
  1. RELPAX [Suspect]
     Indication: MIGRAINE
     Dosage: 20 MG THREE TIMES A WEEK
     Dates: start: 20030101, end: 20130709
  2. ATACAND [Concomitant]
     Indication: MIGRAINE PROPHYLAXIS
     Dates: start: 20111210

REACTIONS (3)
  - Musculoskeletal stiffness [Recovered/Resolved with Sequelae]
  - Myalgia [Recovered/Resolved with Sequelae]
  - Back pain [Recovered/Resolved with Sequelae]
